FAERS Safety Report 13110241 (Version 1)
Quarter: 2017Q1

REPORT INFORMATION
  Report Type: Spontaneous
  Country: US (occurrence: US)
  Receive Date: 20170112
  Receipt Date: 20170112
  Transmission Date: 20170428
  Serious: No
  Sender: FDA-Public Use
  Company Number: US-ROCHE-GNE310976

PATIENT
  Age: 36 Year
  Sex: Female
  Weight: 81.72 kg

DRUGS (1)
  1. ACTIVASE [Suspect]
     Active Substance: ALTEPLASE
     Indication: PRODUCT USED FOR UNKNOWN INDICATION
     Dosage: UNK
     Route: 061
     Dates: start: 20101206

REACTIONS (3)
  - Skin discolouration [Unknown]
  - Accidental exposure to product [None]
  - Paraesthesia [None]

NARRATIVE: CASE EVENT DATE: 20101206
